FAERS Safety Report 5198765-7 (Version None)
Quarter: 2007Q1

REPORT INFORMATION
  Report Type: 
  Country: None (occurrence: None)
  Receive Date: 20070104
  Receipt Date: 20061229
  Transmission Date: 20070707
  Serious: Yes (Hospitalization)
  Sender: FDA-Public Use
  Company Number: JP-JPN-A200605459

PATIENT
  Age: 100 Year
  Sex: Female
  Weight: 39 kg

DRUGS (11)
  1. VALTREX [Suspect]
     Indication: HERPES ZOSTER
     Dosage: 1000MG TWICE PER DAY
     Route: 048
     Dates: start: 20061215, end: 20061216
  2. ESPO [Concomitant]
     Route: 030
  3. ASPIRIN [Concomitant]
     Dosage: 100MG PER DAY
     Route: 048
     Dates: start: 20050101
  4. ADALAT [Concomitant]
     Dosage: 20MG PER DAY
     Route: 048
     Dates: start: 20060606
  5. NITOROL R [Concomitant]
     Dosage: 40MG PER DAY
     Route: 048
     Dates: start: 20060606
  6. FUROSEMIDE [Concomitant]
     Dosage: 20MG PER DAY
     Route: 048
     Dates: start: 20060718
  7. TAKEPRON [Concomitant]
     Dosage: 15MG PER DAY
     Route: 048
     Dates: start: 20060814
  8. LAC B [Concomitant]
     Route: 048
     Dates: start: 20050419, end: 20061222
  9. TANNALBIN [Concomitant]
     Route: 048
     Dates: start: 20050419, end: 20061222
  10. LOPEMIN [Concomitant]
     Route: 048
     Dates: start: 20050419, end: 20061222
  11. POLYFUL [Concomitant]
     Dosage: 3.6MG PER DAY
     Route: 048
     Dates: start: 20050101, end: 20061222

REACTIONS (8)
  - BLOOD CREATININE INCREASED [None]
  - BLOOD UREA INCREASED [None]
  - CONFUSIONAL STATE [None]
  - DEPRESSED LEVEL OF CONSCIOUSNESS [None]
  - HAEMODIALYSIS [None]
  - INCOHERENT [None]
  - OVERDOSE [None]
  - RESTLESSNESS [None]
